FAERS Safety Report 10410931 (Version 2)
Quarter: 2014Q4

REPORT INFORMATION
  Report Type: Spontaneous
  Country: FR (occurrence: FR)
  Receive Date: 20140826
  Receipt Date: 20141030
  Transmission Date: 20150528
  Serious: Yes (Disabling)
  Sender: FDA-Public Use
  Company Number: FR-BAUSCH-SYM-2014-24432

PATIENT
  Age: 70 Year
  Sex: Female

DRUGS (7)
  1. BRIMONIDINE TARTRATE. [Suspect]
     Active Substance: BRIMONIDINE TARTRATE
     Indication: OCULAR HYPERTENSION
     Route: 047
     Dates: start: 20000101
  2. BISOPROLOL [Suspect]
     Active Substance: BISOPROLOL
     Indication: HYPERTENSION
     Route: 048
     Dates: start: 20040830
  3. TIMOPTOL [Suspect]
     Active Substance: TIMOLOL
     Indication: OCULAR HYPERTENSION
     Route: 047
     Dates: start: 19900101, end: 20000101
  4. EVISTA [Suspect]
     Active Substance: RALOXIFENE HYDROCHLORIDE
     Indication: PRODUCT USED FOR UNKNOWN INDICATION
  5. SYMBICORT [Concomitant]
     Active Substance: BUDESONIDE\FORMOTEROL FUMARATE DIHYDRATE
     Indication: PRODUCT USED FOR UNKNOWN INDICATION
  6. RISEDRONATE SODIUM. [Suspect]
     Active Substance: RISEDRONATE SODIUM
     Indication: OSTEOPOROSIS
     Route: 048
     Dates: start: 20090901
  7. ZOFENIL [Suspect]
     Active Substance: ZOFENOPRIL
     Indication: HYPERTENSION
     Route: 048
     Dates: start: 20031201, end: 20040801

REACTIONS (1)
  - Bronchopulmonary disease [Not Recovered/Not Resolved]

NARRATIVE: CASE EVENT DATE: 201007
